FAERS Safety Report 17737200 (Version 1)
Quarter: 2020Q2

REPORT INFORMATION
  Report Type: Spontaneous
  Country: FR (occurrence: FR)
  Receive Date: 20200502
  Receipt Date: 20200502
  Transmission Date: 20200714
  Serious: Yes (Death)
  Sender: FDA-Public Use
  Company Number: FR-TEVA-2020-FR-1229154

PATIENT
  Age: 29 Year
  Sex: Male

DRUGS (1)
  1. PREGABALINE [Suspect]
     Active Substance: PREGABALIN
     Route: 065

REACTIONS (1)
  - Death [Fatal]
